FAERS Safety Report 16834357 (Version 8)
Quarter: 2022Q3

REPORT INFORMATION
  Report Type: Report from Study
  Country: BR (occurrence: BR)
  Receive Date: 20190920
  Receipt Date: 20220724
  Transmission Date: 20221026
  Serious: Yes (Hospitalization, Other)
  Sender: FDA-Public Use
  Company Number: BR-BIOGEN-2019BI00757716

PATIENT
  Age: 52 Year
  Sex: Female
  Weight: 58 kg

DRUGS (5)
  1. TYSABRI [Suspect]
     Active Substance: NATALIZUMAB
     Indication: Multiple sclerosis
     Route: 050
     Dates: start: 20140820
  2. TYSABRI [Suspect]
     Active Substance: NATALIZUMAB
     Route: 050
     Dates: start: 20190820
  3. TYSABRI [Suspect]
     Active Substance: NATALIZUMAB
     Route: 050
     Dates: start: 2015
  4. RISPERIDONE [Suspect]
     Active Substance: RISPERIDONE
     Indication: Anxiety
     Route: 050
  5. ESCITALOPRAM OXALATE [Concomitant]
     Active Substance: ESCITALOPRAM OXALATE
     Indication: Blood pressure increased
     Dosage: 3 TABLETS AT NIGHT
     Route: 050

REACTIONS (38)
  - Myocardial infarction [Unknown]
  - Multiple sclerosis relapse [Unknown]
  - Cerebral infarction [Unknown]
  - Monoplegia [Not Recovered/Not Resolved]
  - Headache [Not Recovered/Not Resolved]
  - Pain [Not Recovered/Not Resolved]
  - Swelling [Not Recovered/Not Resolved]
  - Mass [Not Recovered/Not Resolved]
  - Contusion [Not Recovered/Not Resolved]
  - Post-traumatic headache [Not Recovered/Not Resolved]
  - Neck pain [Not Recovered/Not Resolved]
  - Haematoma [Not Recovered/Not Resolved]
  - Road traffic accident [Recovered/Resolved]
  - Thrombosis [Unknown]
  - Abdominal pain upper [Unknown]
  - Sensory loss [Unknown]
  - Eye pain [Unknown]
  - Limb discomfort [Unknown]
  - Astigmatism [Not Recovered/Not Resolved]
  - Anxiety [Not Recovered/Not Resolved]
  - Insomnia [Not Recovered/Not Resolved]
  - Glaucoma [Not Recovered/Not Resolved]
  - Memory impairment [Not Recovered/Not Resolved]
  - Musculoskeletal chest pain [Not Recovered/Not Resolved]
  - Urinary incontinence [Not Recovered/Not Resolved]
  - Dyspnoea [Unknown]
  - Influenza [Not Recovered/Not Resolved]
  - Tremor [Unknown]
  - Hypoaesthesia [Unknown]
  - Hepatic steatosis [Unknown]
  - Decreased immune responsiveness [Unknown]
  - COVID-19 [Unknown]
  - Drug hypersensitivity [Unknown]
  - Hypertension [Unknown]
  - Multiple sclerosis [Unknown]
  - Bradyphrenia [Not Recovered/Not Resolved]
  - Confusional state [Unknown]
  - Fatigue [Not Recovered/Not Resolved]

NARRATIVE: CASE EVENT DATE: 20170601
